FAERS Safety Report 12543282 (Version 1)
Quarter: 2016Q3

REPORT INFORMATION
  Report Type: Spontaneous
  Country: US (occurrence: US)
  Receive Date: 20160711
  Receipt Date: 20160711
  Transmission Date: 20161109
  Serious: No
  Sender: FDA-Public Use
  Company Number: US-BIOGEN-2016BI00261330

PATIENT
  Sex: Female

DRUGS (1)
  1. AVONEX [Suspect]
     Active Substance: INTERFERON BETA-1A
     Indication: MULTIPLE SCLEROSIS
     Route: 065

REACTIONS (3)
  - Urticaria [Recovered/Resolved]
  - Exostosis [Not Recovered/Not Resolved]
  - Eczema [Recovered/Resolved]

NARRATIVE: CASE EVENT DATE: 2015
